FAERS Safety Report 20702272 (Version 1)
Quarter: 2022Q2

REPORT INFORMATION
  Report Type: Spontaneous
  Country: TR (occurrence: TR)
  Receive Date: 20220412
  Receipt Date: 20220412
  Transmission Date: 20220721
  Serious: Yes (Hospitalization, Other)
  Sender: FDA-Public Use
  Company Number: TR-NOVARTISPH-NVSC2022TR081240

PATIENT
  Age: 80 Year
  Sex: Female

DRUGS (2)
  1. EXELON [Suspect]
     Active Substance: RIVASTIGMINE TARTRATE
     Indication: Delirium
     Dosage: 9.5 MG, QD (PATCH 10 CM2, 18 MG RIVASTIGMINE BASE)
     Route: 062
  2. EXELON [Suspect]
     Active Substance: RIVASTIGMINE TARTRATE
     Dosage: 4.6 MG, QD (PATCH 5CM2, 9MG RIVASTIGMINE BASE)
     Route: 062

REACTIONS (17)
  - Decreased appetite [Unknown]
  - Headache [Unknown]
  - Body temperature increased [Unknown]
  - Fatigue [Unknown]
  - Feeling abnormal [Unknown]
  - Asthenia [Unknown]
  - Feeding disorder [Recovering/Resolving]
  - Trismus [Unknown]
  - Dysphagia [Unknown]
  - Hallucination [Unknown]
  - Dysstasia [Unknown]
  - Gait disturbance [Unknown]
  - Somnolence [Unknown]
  - Speech disorder [Unknown]
  - Incorrect dose administered [Unknown]
  - Product supply issue [Unknown]
  - Off label use [Unknown]
